FAERS Safety Report 9519110 (Version 1)
Quarter: 2013Q1

REPORT INFORMATION
  Report Type: Spontaneous
  Country: US (occurrence: None)
  Receive Date: 20130305
  Receipt Date: 20130305
  Transmission Date: 20140127
  Serious: Yes (Other)
  Sender: FDA-Public Use
  Company Number: 163-21880-12040127

PATIENT
  Age: 77 Year
  Sex: Female

DRUGS (20)
  1. REVLIMID [Suspect]
     Indication: PLASMA CELL MYELOMA
     Route: 048
     Dates: start: 201005
  2. COUMADIN (WARFARIN  SODIUM)  TABLETS [Concomitant]
  3. DEXAMETHASONE (DEXAMETHASONE) (TABLETS) [Concomitant]
  4. CLARITIN (LORATADINE) (TABLETS)?? [Concomitant]
  5. CYANOCOBALAMIN (CYANOCOBALAMIN) (INJECTION) [Concomitant]
  6. FLONASE (FLUTICASONE PROPIONATE) (SUSPENSION) [Concomitant]
  7. HYDROCORTISONE ACETATE (HYDROCORTISONE ACETATE) [Concomitant]
  8. LOSARTAN / HYDROCHLOROTHIAZIDE W/ LOSARTAN) (TABLETS) [Concomitant]
  9. OCUVITE (OCUVITE) [Concomitant]
  10. PREVACID (LANSOPRAZOLE) [Concomitant]
  11. SIMVASTATIN (SIMVASTATIN) [Concomitant]
  12. TYLENOL CODEINE NO 3 (PANADEINE CO) [Concomitant]
  13. VITAMIN B6 (PYRIDOSINE HYDROCHLORIDE) [Concomitant]
  14. VITAMIN D (ERGOCALCIFEROL) [Concomitant]
  15. HYZAAR (HYZAAR) [Concomitant]
  16. NORTRIPYLINE (NORTRIPTYLINE) [Concomitant]
  17. LISINOPRIL /HCTZ (PRINIZIDE) [Concomitant]
  18. LORCET (VICODIN) [Concomitant]
  19. HYDROCORTISONE (HYDROCORTISONE) [Concomitant]
  20. METAXALONE (METAXALONE) [Concomitant]

REACTIONS (16)
  - Diarrhoea [None]
  - Fatigue [None]
  - Pruritus [None]
  - Disturbance in attention [None]
  - Insomnia [None]
  - Malaise [None]
  - Rash [None]
  - Asthenia [None]
  - Drug intolerance [None]
  - Food intolerance [None]
  - Decreased appetite [None]
  - Diarrhoea [None]
  - Fluid retention [None]
  - Fatigue [None]
  - Nausea [None]
  - Anaemia [None]
